FAERS Safety Report 6428344-2 (Version None)
Quarter: 2009Q4

REPORT INFORMATION
  Report Type: 
  Country: None (occurrence: None)
  Receive Date: 20091104
  Receipt Date: 20091104
  Transmission Date: 20100525
  Serious: No
  Sender: FDA-Public Use
  Company Number: None

PATIENT
  Age: 55 Year
  Sex: Male
  Weight: 86.5 kg

DRUGS (2)
  1. VALPROIC ACID [Suspect]
     Indication: AFFECTIVE DISORDER
     Dosage: 1000 MG BID PO
     Route: 048
     Dates: start: 20081101, end: 20090126
  2. VALPROIC ACID [Suspect]
     Indication: CONVULSION
     Dosage: 1000 MG BID PO
     Route: 048
     Dates: start: 20081101, end: 20090126

REACTIONS (4)
  - AGITATION [None]
  - AMMONIA INCREASED [None]
  - HALLUCINATION [None]
  - MENTAL STATUS CHANGES [None]
